FAERS Safety Report 9670229 (Version 2)
Quarter: 2013Q4

REPORT INFORMATION
  Report Type: Report from Study
  Country: BR (occurrence: BR)
  Receive Date: 20131105
  Receipt Date: 20131202
  Transmission Date: 20140711
  Serious: Yes (Other)
  Sender: FDA-Public Use
  Company Number: PHHY2013BR125348

PATIENT
  Sex: Female

DRUGS (3)
  1. TRILEPTAL [Suspect]
     Indication: ARRHYTHMIA
     Dosage: 1 DF DAILY
     Route: 048
  2. TRILEPTAL [Suspect]
     Indication: OFF LABEL USE
     Dosage: 1 DF, DAILY
     Route: 048
  3. TEGRETOL [Suspect]
     Indication: ARRHYTHMIA
     Dosage: 5 ML, DAILY
     Route: 048

REACTIONS (6)
  - Syncope [Recovering/Resolving]
  - Fall [Recovering/Resolving]
  - Anxiety [Recovering/Resolving]
  - Abdominal pain upper [Recovering/Resolving]
  - Nervousness [Recovering/Resolving]
  - Malaise [Recovering/Resolving]
